FAERS Safety Report 25968227 (Version 1)
Quarter: 2025Q4

REPORT INFORMATION
  Report Type: Spontaneous
  Country: EU (occurrence: EU)
  Receive Date: 20251028
  Receipt Date: 20251028
  Transmission Date: 20260118
  Serious: Yes (Other)
  Sender: MSN LABORATORIES PRIVATE LIMITED
  Company Number: None

PATIENT

DRUGS (1)
  1. PREGABALIN [Suspect]
     Active Substance: PREGABALIN
     Indication: Product used for unknown indication
     Dosage: 1200 MG, QD
     Route: 065

REACTIONS (6)
  - Drug use disorder [Unknown]
  - Pharmaceutical nomadism [Unknown]
  - Weaning failure [Unknown]
  - Intentional overdose [Unknown]
  - Drug dependence [Unknown]
  - Intentional product misuse [Unknown]
